FAERS Safety Report 11592536 (Version 1)
Quarter: 2015Q4

REPORT INFORMATION
  Report Type: Report from Study
  Country: GB (occurrence: GB)
  Receive Date: 20151005
  Receipt Date: 20151005
  Transmission Date: 20160304
  Serious: Yes (Death)
  Sender: FDA-Public Use
  Company Number: GB-CELGENE-GBR-2015095554

PATIENT
  Age: 71 Year
  Sex: Female
  Weight: 65 kg

DRUGS (2)
  1. THALIDOMIDE [Suspect]
     Active Substance: THALIDOMIDE
     Indication: PLASMA CELL MYELOMA
     Route: 048
     Dates: start: 20120513, end: 20120719
  2. THALIDOMIDE [Suspect]
     Active Substance: THALIDOMIDE
     Route: 048
     Dates: start: 20120720, end: 20121222

REACTIONS (1)
  - Treatment failure [Fatal]

NARRATIVE: CASE EVENT DATE: 20121222
